FAERS Safety Report 25133510 (Version 1)
Quarter: 2025Q1

REPORT INFORMATION
  Report Type: Report from Study
  Country: CA (occurrence: CA)
  Receive Date: 20250328
  Receipt Date: 20250328
  Transmission Date: 20250408
  Serious: Yes (Other)
  Sender: TAKEDA
  Company Number: CA-TAKEDA-2025TUS030928

PATIENT
  Age: 39 Year
  Sex: Female

DRUGS (10)
  1. VEDOLIZUMAB [Suspect]
     Active Substance: VEDOLIZUMAB
     Indication: Crohn^s disease
  2. VEDOLIZUMAB [Suspect]
     Active Substance: VEDOLIZUMAB
     Dosage: 300 MILLIGRAM, Q4WEEKS
     Dates: start: 20200601
  3. NEXIUM [Concomitant]
     Active Substance: ESOMEPRAZOLE MAGNESIUM
  4. DOMPERIDONE [Concomitant]
     Active Substance: DOMPERIDONE
  5. ZOPICLONE [Concomitant]
     Active Substance: ZOPICLONE
  6. OXYCODONE [Concomitant]
     Active Substance: OXYCODONE
  7. ENTOCORT [Concomitant]
     Active Substance: BUDESONIDE
  8. ENTOCORT [Concomitant]
     Active Substance: BUDESONIDE
  9. Colase [Concomitant]
  10. CORTISONE [Concomitant]
     Active Substance: CORTISONE

REACTIONS (3)
  - Pneumonia [Recovered/Resolved]
  - Streptococcal infection [Recovered/Resolved]
  - Off label use [Unknown]

NARRATIVE: CASE EVENT DATE: 20200601
